FAERS Safety Report 8410032-4 (Version None)
Quarter: 2012Q2

REPORT INFORMATION
  Report Type: 
  Country: None (occurrence: None)
  Receive Date: 20120605
  Receipt Date: 20120523
  Transmission Date: 20120825
  Serious: Yes (Hospitalization, Other)
  Sender: FDA-Public Use
  Company Number: JP-UCBSA-052114

PATIENT
  Age: 75 Year
  Sex: Female

DRUGS (15)
  1. CIMZIA [Suspect]
     Indication: RHEUMATOID ARTHRITIS
     Route: 058
     Dates: start: 20090605, end: 20120302
  2. MELOXICAM [Concomitant]
     Dosage: DAILY DOSE 10 MG
     Dates: start: 20090605
  3. GLYCYRRHIZA POWDER COMBINED DRUG [Concomitant]
     Dosage: DAILY DOSE 3.9 G
     Dates: start: 20090605
  4. RABEPRAZOLE SODIUM [Concomitant]
     Dosage: DAILY DOSE 10 MG
     Dates: start: 20090605
  5. LOXOPROFEN SODIUM HYDRATE [Concomitant]
     Dosage: DAILY DOSE 60 MG
     Dates: start: 20090605
  6. ALFACALCIDOL [Concomitant]
     Dosage: DAILY DOSE 0.5 MCG
     Dates: start: 20090605
  7. CANDESARTAN CILEXETIL [Concomitant]
     Dosage: DAILY DOSE 12 MG
     Dates: start: 20090605
  8. NIFEDIPINE [Concomitant]
     Dosage: DAILY DOSE 10 MG
     Dates: start: 20100522
  9. SODIUM HYALURONATE [Concomitant]
     Dosage: DAILY DOSE QS, AS NEEDED
     Dates: start: 20110510
  10. FOLIC ACID [Concomitant]
     Dosage: DAILY DOSE 5 MG/WEEK
     Dates: start: 20090605
  11. METHOTREXATE [Concomitant]
     Dosage: 4-2-2- MG TOTAL 8 MG IN A WEEK
     Dates: start: 20090605
  12. KETOPROFEN [Concomitant]
     Dosage: DAILY DOSE QS, AS NEEDED
     Dates: start: 20090605
  13. IFENPRODIL TARTRATE [Concomitant]
     Dosage: DAILY DOSE 30 MG
     Dates: start: 20090605
  14. PREDNISOLONE [Concomitant]
     Dosage: DAILY DOSE 2.5 MG
     Dates: start: 20090605
  15. IRSOGLADINE MALEATE [Concomitant]
     Dosage: DAILY DOSE 2 MG
     Dates: start: 20090605

REACTIONS (1)
  - NASAL SINUS CANCER [None]
